FAERS Safety Report 4779783-7 (Version None)
Quarter: 2005Q3

REPORT INFORMATION
  Report Type: 
  Country: None (occurrence: None)
  Receive Date: 20050914
  Receipt Date: 20050621
  Transmission Date: 20060218
  Serious: No
  Sender: FDA-Public Use
  Company Number: 163-20785-04020777

PATIENT
  Age: 43 Year
  Sex: Female

DRUGS (3)
  1. THALOMID [Suspect]
     Indication: METASTASES TO CENTRAL NERVOUS SYSTEM
     Dosage: 50-800MG, QHS, ORAL
     Route: 048
     Dates: start: 20020311, end: 20040205
  2. THALOMID [Suspect]
     Indication: METASTASES TO LUNG
     Dosage: 50-800MG, QHS, ORAL
     Route: 048
     Dates: start: 20020311, end: 20040205
  3. THALOMID [Suspect]
     Indication: METASTATIC MALIGNANT MELANOMA
     Dosage: 50-800MG, QHS, ORAL
     Route: 048
     Dates: start: 20020311, end: 20040205

REACTIONS (1)
  - DEEP VEIN THROMBOSIS [None]
